FAERS Safety Report 16045676 (Version 1)
Quarter: 2019Q1

REPORT INFORMATION
  Report Type: Report from Study
  Country: AU (occurrence: AU)
  Receive Date: 20190307
  Receipt Date: 20190307
  Transmission Date: 20190418
  Serious: Yes (Hospitalization)
  Sender: FDA-Public Use
  Company Number: AU-IPSEN BIOPHARMACEUTICALS, INC.-2019-01604

PATIENT
  Age: 93 Year
  Sex: Female

DRUGS (2)
  1. SOMATULINE AUTOGEL 90MG [Suspect]
     Active Substance: LANREOTIDE ACETATE
     Indication: CARCINOID TUMOUR
     Route: 058
     Dates: start: 2017, end: 201902
  2. SOMATULINE AUTOGEL 90MG [Suspect]
     Active Substance: LANREOTIDE ACETATE
     Indication: NEUROENDOCRINE TUMOUR

REACTIONS (5)
  - Fall [Recovering/Resolving]
  - Hip fracture [Recovering/Resolving]
  - Diarrhoea [Not Recovered/Not Resolved]
  - Dehydration [Recovering/Resolving]
  - Asthenia [Not Recovered/Not Resolved]

NARRATIVE: CASE EVENT DATE: 20190131
